FAERS Safety Report 5113812-6 (Version None)
Quarter: 2006Q3

REPORT INFORMATION
  Report Type: 
  Country: None (occurrence: None)
  Receive Date: 20060925
  Receipt Date: 20060913
  Transmission Date: 20061208
  Serious: Yes (Death, Hospitalization)
  Sender: FDA-Public Use
  Company Number: SE-BAYER-200614102GDS

PATIENT
  Age: 91 Year
  Sex: Female

DRUGS (3)
  1. CIPROFLOXACIN [Suspect]
     Indication: URINARY TRACT INFECTION
     Dosage: UNIT DOSE: 500 MG
     Route: 048
     Dates: start: 20050722, end: 20050727
  2. ACETAMINOPHEN [Suspect]
     Indication: DRUG USE FOR UNKNOWN INDICATION
     Route: 065
     Dates: start: 20050701
  3. LANSOPRAZOLE [Suspect]
     Indication: DRUG USE FOR UNKNOWN INDICATION
     Route: 048
     Dates: start: 20050724

REACTIONS (8)
  - ANGIONEUROTIC OEDEMA [None]
  - CHROMATURIA [None]
  - DYSPHAGIA [None]
  - MYOGLOBIN BLOOD INCREASED [None]
  - RASH MACULO-PAPULAR [None]
  - RHABDOMYOLYSIS [None]
  - SWOLLEN TONGUE [None]
  - THROAT TIGHTNESS [None]
